APPROVED DRUG PRODUCT: POLYMYXIN B SULFATE
Active Ingredient: POLYMYXIN B SULFATE
Strength: EQ 500,000 UNITS BASE/VIAL
Dosage Form/Route: INJECTABLE;INJECTION
Application: A202766 | Product #001 | TE Code: AP
Applicant: XELLIA PHARMACEUTICALS APS
Approved: Jan 15, 2014 | RLD: No | RS: Yes | Type: RX